FAERS Safety Report 6792875-6 (Version None)
Quarter: 2010Q2

REPORT INFORMATION
  Report Type: 
  Country: None (occurrence: None)
  Receive Date: 20100624
  Receipt Date: 20081205
  Transmission Date: 20101027
  Serious: No
  Sender: FDA-Public Use
  Company Number: US-PFIZER INC-2008080522

PATIENT
  Sex: Female
  Weight: 63.636 kg

DRUGS (8)
  1. XALATAN [Suspect]
     Indication: GLAUCOMA
     Dosage: 5 UG, UNK
     Dates: start: 20080724
  2. XALATAN [Suspect]
     Indication: INTRAOCULAR PRESSURE INCREASED
  3. ATENOLOL [Concomitant]
     Indication: BLOOD PRESSURE
     Route: 048
  4. CRESTOR [Concomitant]
     Indication: BLOOD CHOLESTEROL
  5. FLONASE [Concomitant]
     Indication: HYPERSENSITIVITY
  6. AMBIEN [Concomitant]
     Indication: SLEEP DISORDER
     Dosage: UNK
  7. HYPROMELLOSE [Concomitant]
     Dosage: UNK
  8. ALLEGRA [Concomitant]
     Dosage: UNK

REACTIONS (10)
  - ARTHRALGIA [None]
  - BONE PAIN [None]
  - DRUG HYPERSENSITIVITY [None]
  - EYE OEDEMA [None]
  - EYE PAIN [None]
  - EYELID OEDEMA [None]
  - FACIAL PAIN [None]
  - HEADACHE [None]
  - OCULAR HYPERAEMIA [None]
  - SWELLING FACE [None]
